FAERS Safety Report 17420423 (Version 1)
Quarter: 2020Q1

REPORT INFORMATION
  Report Type: Spontaneous
  Country: US (occurrence: US)
  Receive Date: 20200214
  Receipt Date: 20200214
  Transmission Date: 20200409
  Serious: No
  Sender: FDA-Public Use
  Company Number: US-SERB S.A.S.-2080372

PATIENT
  Age: 73 Year
  Sex: Male

DRUGS (2)
  1. SODIUM THIOSULFATE [Concomitant]
     Active Substance: SODIUM THIOSULFATE
     Route: 065
  2. CYANOKIT [Suspect]
     Active Substance: HYDROXOCOBALAMIN
     Route: 065

REACTIONS (4)
  - Chromaturia [Unknown]
  - Serum colour abnormal [Unknown]
  - Drug-device interaction [Recovered/Resolved]
  - Therapy cessation [Recovered/Resolved]
